FAERS Safety Report 13814897 (Version 2)
Quarter: 2017Q3

REPORT INFORMATION
  Report Type: Spontaneous
  Country: GB (occurrence: GB)
  Receive Date: 20170731
  Receipt Date: 20170907
  Transmission Date: 20171127
  Serious: Yes (Hospitalization, Other)
  Sender: FDA-Public Use
  Company Number: GB-TEVA-789933ACC

PATIENT
  Age: 76 Year
  Sex: Male

DRUGS (7)
  1. SINEMET [Concomitant]
     Active Substance: CARBIDOPA\LEVODOPA
     Indication: FATIGUE
  2. INDAPAMIDE. [Suspect]
     Active Substance: INDAPAMIDE
     Route: 048
  3. PARACETAMOL [Concomitant]
     Active Substance: ACETAMINOPHEN
  4. TABPHYN MR [Concomitant]
  5. INDAPAMIDE. [Suspect]
     Active Substance: INDAPAMIDE
     Route: 048
  6. DERMOL 500 LOTION [Concomitant]
     Indication: SKIN IRRITATION
  7. ESOMEPRAZOLE [Concomitant]
     Active Substance: ESOMEPRAZOLE
     Dosage: 2.5 MILLIGRAM DAILY;

REACTIONS (17)
  - Fatigue [Unknown]
  - Iron deficiency anaemia [Unknown]
  - Insomnia [Unknown]
  - Rhinitis [Unknown]
  - Blood pressure systolic increased [Unknown]
  - Seasonal allergy [Unknown]
  - Anaemia [Unknown]
  - Faeces discoloured [Unknown]
  - Cough [Unknown]
  - Hypersomnia [Unknown]
  - Muscle spasms [Unknown]
  - Headache [Unknown]
  - Diarrhoea [Unknown]
  - Chills [Unknown]
  - Oropharyngeal pain [Unknown]
  - Pruritus [Unknown]
  - Skin irritation [Unknown]
